FAERS Safety Report 22136124 (Version 3)
Quarter: 2023Q2

REPORT INFORMATION
  Report Type: Report from Study
  Country: AU (occurrence: AU)
  Receive Date: 20230324
  Receipt Date: 20230503
  Transmission Date: 20230721
  Serious: Yes (Hospitalization)
  Sender: FDA-Public Use
  Company Number: AU-ABBVIE-4700421

PATIENT
  Sex: Male

DRUGS (2)
  1. CARBIDOPA\LEVODOPA [Suspect]
     Active Substance: CARBIDOPA\LEVODOPA
     Indication: Parkinson^s disease
     Dosage: DOSE DECREASED, DURATION TEXT: 16 HOURS, FIRST ADMIN DATE: 16 FEB 2023. LAST ADMIN DATE: 2023 ?MO...
     Route: 050
     Dates: start: 20230216
  2. CARBIDOPA\LEVODOPA [Suspect]
     Active Substance: CARBIDOPA\LEVODOPA
     Dosage: DURATION TEXT: 16 HOURS.?CONTINUOUS RATE 5.5 AND EXTRA DOSE 1ML WITH A 2 HOUR LOCK OUT.?FIRST ADM...
     Route: 050

REACTIONS (7)
  - Dopamine dysregulation syndrome [Unknown]
  - Anxiety [Unknown]
  - Tremor [Unknown]
  - Gait disturbance [Unknown]
  - Abnormal behaviour [Unknown]
  - Aggression [Unknown]
  - Mobility decreased [Unknown]

NARRATIVE: CASE EVENT DATE: 20230101
